FAERS Safety Report 5709467-X (Version None)
Quarter: 2008Q2

REPORT INFORMATION
  Report Type: 
  Country: None (occurrence: None)
  Receive Date: 20080417
  Receipt Date: 20080417
  Transmission Date: 20081010
  Serious: Yes (Hospitalization)
  Sender: FDA-Public Use
  Company Number: None

PATIENT
  Age: 19 Year
  Sex: Male
  Weight: 51.5 kg

DRUGS (3)
  1. VANCOMYCIN [Suspect]
     Indication: CYSTIC FIBROSIS
     Dosage: 1000MG BID IV
     Route: 042
     Dates: start: 20080327
  2. VANCOMYCIN [Suspect]
     Indication: SINUSITIS BACTERIAL
     Dosage: 1000MG BID IV
     Route: 042
     Dates: start: 20080327
  3. VANCOMYCIN [Suspect]
     Indication: STAPHYLOCOCCAL INFECTION
     Dosage: 1000MG BID IV
     Route: 042
     Dates: start: 20080327

REACTIONS (2)
  - RED MAN SYNDROME [None]
  - SWELLING FACE [None]
